FAERS Safety Report 12113926 (Version 1)
Quarter: 2016Q1

REPORT INFORMATION
  Report Type: Spontaneous
  Country: US (occurrence: None)
  Receive Date: 20160224
  Receipt Date: 20160224
  Transmission Date: 20160526
  Serious: Yes (Other)
  Sender: FDA-Public Use
  Company Number: None

PATIENT
  Age: 71 Year
  Sex: Male
  Weight: 74.4 kg

DRUGS (2)
  1. WARFARIN [Suspect]
     Active Substance: WARFARIN
     Indication: PULMONARY EMBOLISM
     Route: 048
     Dates: start: 20151214, end: 20151217
  2. ENOXAPARIN (GENERIC) [Concomitant]
     Active Substance: ENOXAPARIN
     Indication: PULMONARY EMBOLISM
     Route: 058
     Dates: start: 20151216, end: 20151217

REACTIONS (3)
  - Haemorrhage [None]
  - International normalised ratio increased [None]
  - Muscle haemorrhage [None]

NARRATIVE: CASE EVENT DATE: 20151217
